FAERS Safety Report 9055525 (Version 4)
Quarter: 2015Q1

REPORT INFORMATION
  Report Type: Spontaneous
  Country: JP (occurrence: JP)
  Receive Date: 20130206
  Receipt Date: 20150129
  Transmission Date: 20150721
  Serious: Yes (Death, Other)
  Sender: FDA-Public Use
  Company Number: JP-GLAXOSMITHKLINE-B0860879A

PATIENT
  Age: 77 Year
  Sex: Male
  Weight: 61 kg

DRUGS (7)
  1. TASIGNA [Concomitant]
     Active Substance: NILOTINIB
     Route: 048
     Dates: start: 20130125
  2. KREMEZIN [Concomitant]
     Active Substance: ACTIVATED CHARCOAL
     Indication: RENAL DISORDER
     Route: 048
     Dates: start: 20120718
  3. VICTOZA [Concomitant]
     Active Substance: LIRAGLUTIDE
     Indication: DIABETES MELLITUS
     Route: 058
     Dates: start: 20101208
  4. ELTROMBOPAG [Suspect]
     Active Substance: ELTROMBOPAG
     Indication: IMMUNE THROMBOCYTOPENIC PURPURA
     Route: 048
     Dates: start: 20110520, end: 20130110
  5. ZYLORIC [Concomitant]
     Active Substance: ALLOPURINOL
     Indication: HYPERURICAEMIA
     Route: 048
     Dates: start: 20111108
  6. NU-LOTAN [Concomitant]
     Active Substance: LOSARTAN POTASSIUM
     Indication: HYPERTENSION
     Route: 048
     Dates: start: 20110921
  7. SPRYCEL [Concomitant]
     Active Substance: DASATINIB
     Route: 048
     Dates: start: 20130121

REACTIONS (10)
  - Anaemia [Unknown]
  - Mesenteric haematoma [Unknown]
  - Headache [Unknown]
  - White blood cell count increased [Unknown]
  - Hepatosplenomegaly [Unknown]
  - Death [Fatal]
  - Chronic myeloid leukaemia [Not Recovered/Not Resolved]
  - Hemiparesis [Unknown]
  - Brain herniation [Unknown]
  - Subdural haematoma [Unknown]

NARRATIVE: CASE EVENT DATE: 20121127
